FAERS Safety Report 9085470 (Version 1)
Quarter: 2013Q1

REPORT INFORMATION
  Report Type: Report from Study
  Country: IN (occurrence: IN)
  Receive Date: 20130131
  Receipt Date: 20130131
  Transmission Date: 20140127
  Serious: Yes (Hospitalization)
  Sender: FDA-Public Use
  Company Number: IN-PFIZER INC-2013032801

PATIENT
  Age: 55 Year
  Sex: Female

DRUGS (8)
  1. CISPLATIN [Suspect]
     Indication: SQUAMOUS CELL CARCINOMA OF HEAD AND NECK
     Dosage: 30 MG/M2, 1X/DAY
     Route: 042
     Dates: start: 20120808, end: 20120822
  2. P276-00 [Suspect]
     Indication: SQUAMOUS CELL CARCINOMA OF HEAD AND NECK
     Dosage: 100 MG/M2, 1X/DAY
     Route: 042
     Dates: start: 20120807, end: 20120811
  3. RANITIDINE [Concomitant]
     Indication: GASTRITIS
     Dosage: 300 MG, UNK
     Route: 048
     Dates: start: 20120807, end: 20120824
  4. METOCLOPRAMIDE [Concomitant]
     Indication: NAUSEA
     Dosage: 10 MG, UNK
     Route: 048
     Dates: start: 20120807, end: 20120824
  5. METOCLOPRAMIDE [Concomitant]
     Indication: VOMITING
  6. ACECLOFENAC/PARACETAMOL [Concomitant]
     Indication: PAIN
     Dosage: 1200 MG, UNK
     Route: 048
     Dates: start: 20120719, end: 20120824
  7. CIPROFLOXACIN [Concomitant]
     Indication: INFECTION
     Dosage: 1000 MG, UNK
     Route: 048
     Dates: start: 20120822, end: 20120824
  8. FLUCONAZOLE [Concomitant]
     Indication: FUNGAL INFECTION
     Dosage: 100 MG, UNK
     Route: 048
     Dates: start: 20120823, end: 20120824

REACTIONS (1)
  - Upper respiratory tract infection [Recovered/Resolved]
